FAERS Safety Report 11142403 (Version 2)
Quarter: 2015Q2

REPORT INFORMATION
  Report Type: Report from Study
  Country: US (occurrence: US)
  Receive Date: 20150527
  Receipt Date: 20150611
  Transmission Date: 20150821
  Serious: Yes (Hospitalization)
  Sender: FDA-Public Use
  Company Number: US-ABBVIE-15P-163-1397011-00

PATIENT
  Age: 32 Year
  Sex: Male

DRUGS (5)
  1. COLAZAL [Concomitant]
     Active Substance: BALSALAZIDE DISODIUM
     Indication: COLITIS ULCERATIVE
  2. HUMIRA [Suspect]
     Active Substance: ADALIMUMAB
     Route: 065
     Dates: start: 2015, end: 2015
  3. PREDNISONE. [Concomitant]
     Active Substance: PREDNISONE
     Indication: COLITIS ULCERATIVE
  4. HUMIRA [Suspect]
     Active Substance: ADALIMUMAB
     Indication: COLITIS ULCERATIVE
     Route: 065
     Dates: start: 20150422, end: 20150422
  5. HUMIRA [Suspect]
     Active Substance: ADALIMUMAB
     Route: 065
     Dates: start: 2015

REACTIONS (3)
  - Joint swelling [Unknown]
  - Oedema peripheral [Unknown]
  - Thrombosis [Unknown]

NARRATIVE: CASE EVENT DATE: 20150512
